FAERS Safety Report 18869144 (Version 2)
Quarter: 2021Q2

REPORT INFORMATION
  Report Type: Spontaneous
  Country: US (occurrence: US)
  Receive Date: 20210210
  Receipt Date: 20210518
  Transmission Date: 20210717
  Serious: Yes (Other)
  Sender: FDA-Public Use
  Company Number: US-GILEAD-2021-0515330

PATIENT
  Age: 74 Year
  Sex: Male

DRUGS (2)
  1. BIKTARVY [Concomitant]
     Active Substance: BICTEGRAVIR SODIUM\EMTRICITABINE\TENOFOVIR ALAFENAMIDE FUMARATE
  2. ATRIPLA [Suspect]
     Active Substance: EFAVIRENZ\EMTRICITABINE\TENOFOVIR DISOPROXIL FUMARATE
     Indication: HIV INFECTION
     Dosage: UNK
     Route: 048
     Dates: start: 2007, end: 201712

REACTIONS (5)
  - Tibia fracture [Recovered/Resolved]
  - Acute kidney injury [Recovered/Resolved]
  - Fibula fracture [Recovered/Resolved]
  - Ankle fracture [Recovered/Resolved]
  - Multiple fractures [Unknown]

NARRATIVE: CASE EVENT DATE: 201811
